FAERS Safety Report 13903021 (Version 2)
Quarter: 2018Q3

REPORT INFORMATION
  Report Type: Report from Study
  Country: US (occurrence: US)
  Receive Date: 20170824
  Receipt Date: 20180809
  Transmission Date: 20181010
  Serious: Yes (Other)
  Sender: FDA-Public Use
  Company Number: US-ROCHE-1983223

PATIENT
  Sex: Female
  Weight: 60.38 kg

DRUGS (6)
  1. LOSARTAN. [Concomitant]
     Active Substance: LOSARTAN
     Indication: HYPERTENSION
     Route: 048
  2. PRESERVISION [Concomitant]
     Active Substance: MINERALS\VITAMINS
     Route: 065
  3. LUCENTIS [Suspect]
     Active Substance: RANIBIZUMAB
     Indication: NEOVASCULAR AGE-RELATED MACULAR DEGENERATION
     Route: 050
     Dates: start: 201610
  4. BISABOLOL [Concomitant]
     Indication: HYPERTENSION
     Route: 048
  5. ASPIRIN. [Concomitant]
     Active Substance: ASPIRIN
     Route: 048
  6. GLIPIZIDE. [Concomitant]
     Active Substance: GLIPIZIDE
     Indication: DIABETES MELLITUS
     Route: 065

REACTIONS (11)
  - Skin exfoliation [Recovered/Resolved]
  - Fear [Not Recovered/Not Resolved]
  - Pain [Recovered/Resolved with Sequelae]
  - Accident [Unknown]
  - Hypoacusis [Not Recovered/Not Resolved]
  - Eye swelling [Recovered/Resolved]
  - Madarosis [Recovered/Resolved]
  - Eye infection [Recovered/Resolved]
  - Eye haemorrhage [Recovered/Resolved]
  - Confusional state [Unknown]
  - Blindness [Recovered/Resolved]

NARRATIVE: CASE EVENT DATE: 2017
